FAERS Safety Report 13506037 (Version 1)
Quarter: 2017Q2

REPORT INFORMATION
  Report Type: Spontaneous
  Country: US (occurrence: US)
  Receive Date: 20170502
  Receipt Date: 20170502
  Transmission Date: 20170830
  Serious: No
  Sender: FDA-Public Use
  Company Number: US-ROCHE-1448104

PATIENT
  Sex: Male

DRUGS (1)
  1. AVASTIN [Suspect]
     Active Substance: BEVACIZUMAB
     Indication: OPTIC NEUROPATHY
     Dosage: DATE OF LAST DOSE 30/JUL/2014
     Route: 050

REACTIONS (1)
  - Dyspnoea [Unknown]
